FAERS Safety Report 6465974-6 (Version None)
Quarter: 2009Q4

REPORT INFORMATION
  Report Type: 
  Country: None (occurrence: None)
  Receive Date: 20091201
  Receipt Date: 20091201
  Transmission Date: 20100525
  Serious: Yes (Disabling)
  Sender: FDA-Public Use
  Company Number: None

PATIENT
  Age: 69 Year
  Sex: Male
  Weight: 74.8435 kg

DRUGS (2)
  1. LIPITOR [Suspect]
     Indication: BLOOD CHOLESTEROL INCREASED
     Dosage: 40 MG DAILEY 1 DAILEY ORAL
     Route: 048
     Dates: start: 20050101, end: 20081001
  2. CRESTOR [Suspect]
     Indication: BLOOD CHOLESTEROL INCREASED
     Dosage: 10 MG DAILEY 1 DAILEY ORAL
     Route: 048
     Dates: start: 20081001, end: 20090601

REACTIONS (5)
  - MUSCULAR WEAKNESS [None]
  - MYOPATHY [None]
  - NEUROPATHY PERIPHERAL [None]
  - TREMOR [None]
  - WEIGHT DECREASED [None]
